FAERS Safety Report 8574175-7 (Version None)
Quarter: 2012Q2

REPORT INFORMATION
  Report Type: 
  Country: None (occurrence: None)
  Receive Date: 20120423
  Receipt Date: 20100308
  Transmission Date: 20120825
  Serious: Yes (Other)
  Sender: FDA-Public Use
  Company Number: PHEH2010US02950

PATIENT
  Age: 76 Year
  Sex: Male

DRUGS (1)
  1. EXJADE [Suspect]
     Dosage: 1625 MG, QD, ORAL
     Route: 048
     Dates: end: 20100225

REACTIONS (2)
  - PLATELET COUNT DECREASED [None]
  - POLYP [None]
